FAERS Safety Report 9980619 (Version 2)
Quarter: 2014Q1

REPORT INFORMATION
  Report Type: Spontaneous
  Country: IN (occurrence: IN)
  Receive Date: 20140307
  Receipt Date: 20140315
  Transmission Date: 20141002
  Serious: Yes (Hospitalization, Other)
  Sender: FDA-Public Use
  Company Number: IN-009507513-1403IND003062

PATIENT
  Age: 53 Year
  Sex: Male

DRUGS (1)
  1. JANUVIA [Suspect]
     Indication: DIABETES MELLITUS
     Dosage: 50 MG, QD
     Route: 048

REACTIONS (2)
  - Macular oedema [Recovering/Resolving]
  - Hepatic steatosis [Not Recovered/Not Resolved]
